FAERS Safety Report 19577285 (Version 1)
Quarter: 2021Q3

REPORT INFORMATION
  Report Type: Report from Study
  Country: IN (occurrence: IN)
  Receive Date: 20210719
  Receipt Date: 20210719
  Transmission Date: 20211014
  Serious: Yes (Death)
  Sender: FDA-Public Use
  Company Number: PHHY2018IN022799

PATIENT
  Age: 63 Year
  Sex: Male

DRUGS (3)
  1. CARDIVAS [Concomitant]
     Indication: PRODUCT USED FOR UNKNOWN INDICATION
     Dosage: 6.25 MG, BID
     Route: 048
     Dates: start: 2009
  2. VYMADA [Suspect]
     Active Substance: SACUBITRIL\VALSARTAN
     Indication: CARDIAC FAILURE CHRONIC
     Dosage: 0.5 DF (25 MG), BID
     Route: 048
     Dates: start: 20180502
  3. VYMADA [Suspect]
     Active Substance: SACUBITRIL\VALSARTAN
     Dosage: 0.5 DF (50 MG), BID
     Route: 048
     Dates: start: 20180529

REACTIONS (6)
  - Asthenia [Unknown]
  - Wrong technique in product usage process [Not Recovered/Not Resolved]
  - Cardiopulmonary failure [Fatal]
  - Prescribed underdose [Not Recovered/Not Resolved]
  - Product prescribing error [Not Recovered/Not Resolved]
  - Vertigo [Unknown]

NARRATIVE: CASE EVENT DATE: 20180502
